FAERS Safety Report 5621176-4 (Version None)
Quarter: 2008Q1

REPORT INFORMATION
  Report Type: 
  Country: None (occurrence: None)
  Receive Date: 20080114
  Receipt Date: 20061204
  Transmission Date: 20080703
  Serious: Yes (Other)
  Sender: FDA-Public Use
  Company Number: A03200607427

PATIENT
  Age: 76 Year
  Sex: Female
  Weight: 49.4421 kg

DRUGS (1)
  1. PLAVIX [Suspect]
     Dosage: 75 MG QD - ORAL
     Route: 048
     Dates: start: 20010910

REACTIONS (2)
  - CONTUSION [None]
  - LIP SWELLING [None]
